FAERS Safety Report 4816746-7 (Version None)
Quarter: 2005Q4

REPORT INFORMATION
  Report Type: 
  Country: None (occurrence: None)
  Receive Date: 20051101
  Receipt Date: 20050617
  Transmission Date: 20060501
  Serious: No
  Sender: FDA-Public Use
  Company Number: A0563422A

PATIENT

DRUGS (1)
  1. AMOXIL [Suspect]
     Indication: DRUG USE FOR UNKNOWN INDICATION
     Dosage: 875U UNKNOWN
     Route: 065

REACTIONS (9)
  - DIARRHOEA [None]
  - DIZZINESS [None]
  - MALAISE [None]
  - NAUSEA [None]
  - PAIN IN EXTREMITY [None]
  - PRURITUS [None]
  - SHOULDER PAIN [None]
  - VEIN DISORDER [None]
  - VOMITING [None]
